FAERS Safety Report 19217274 (Version 1)
Quarter: 2021Q2

REPORT INFORMATION
  Report Type: Spontaneous
  Country: US (occurrence: US)
  Receive Date: 20210505
  Receipt Date: 20210505
  Transmission Date: 20210717
  Serious: Yes (Hospitalization, Other)
  Sender: FDA-Public Use
  Company Number: US-ORGANON-O2104USA002294

PATIENT
  Sex: Male

DRUGS (10)
  1. SINEMET [Suspect]
     Active Substance: CARBIDOPA\LEVODOPA
     Dosage: UNK
     Route: 048
     Dates: start: 20201204, end: 202012
  2. MIRAPEX [Concomitant]
     Active Substance: PRAMIPEXOLE DIHYDROCHLORIDE
     Dosage: UNK
  3. SEROQUEL [Concomitant]
     Active Substance: QUETIAPINE FUMARATE
     Dosage: UNK
  4. GOCOVRI [Suspect]
     Active Substance: AMANTADINE
     Dosage: 137 MILLIGRAM, QD,AT BEDTIME AT ODD DAYS
     Route: 048
     Dates: start: 20210401
  5. GOCOVRI [Suspect]
     Active Substance: AMANTADINE
     Dosage: 274 MILLIGRAM, QD, AT BEDTIME ON EVEN DAYS
     Route: 048
     Dates: start: 20210402
  6. ENTACAPONE. [Suspect]
     Active Substance: ENTACAPONE
     Dosage: UNK
     Dates: start: 20201204, end: 202012
  7. STALEVO [CARBIDOPA MONOHYDRATE;ENTACAPONE;LEVODOPA] [Concomitant]
     Dosage: UNK
     Dates: end: 20201203
  8. XANAX [Concomitant]
     Active Substance: ALPRAZOLAM
     Dosage: UNK
  9. STALEVO [CARBIDOPA MONOHYDRATE;ENTACAPONE;LEVODOPA] [Concomitant]
     Dosage: UNK
     Dates: start: 202012
  10. GOCOVRI [Suspect]
     Active Substance: AMANTADINE
     Indication: DYSKINESIA
     Dosage: 274 MILLIGRAM, QD AT BEDTIME
     Route: 048
     Dates: start: 20180814, end: 20210331

REACTIONS (10)
  - Loss of personal independence in daily activities [Recovering/Resolving]
  - Incontinence [Not Recovered/Not Resolved]
  - Cellulitis [Recovering/Resolving]
  - Hallucination [Not Recovered/Not Resolved]
  - Lack of spontaneous speech [Recovering/Resolving]
  - Fall [Unknown]
  - Product dose omission issue [Unknown]
  - Gait inability [Recovering/Resolving]
  - Hospice care [Unknown]
  - Head injury [Recovering/Resolving]

NARRATIVE: CASE EVENT DATE: 2020
